FAERS Safety Report 9537358 (Version 1)
Quarter: 2013Q3

REPORT INFORMATION
  Report Type: Report from Study
  Country: US (occurrence: US)
  Receive Date: 20130919
  Receipt Date: 20130919
  Transmission Date: 20140515
  Serious: Yes (Hospitalization, Other)
  Sender: FDA-Public Use
  Company Number: US-PFIZER INC-2013259867

PATIENT
  Age: 70 Year
  Sex: Female
  Weight: 56.2 kg

DRUGS (5)
  1. NO SUBJECT DRUG [Suspect]
     Indication: ADENOCARCINOMA OF COLON
     Dosage: NO DOSE GIVEN
     Route: 048
  2. FLUOROURACIL [Suspect]
     Indication: ADENOCARCINOMA OF COLON
     Dosage: 400 MG/M2 ON DAY 1
     Route: 042
     Dates: start: 20130813
  3. FLUOROURACIL [Suspect]
     Dosage: 2400 MG/M2 OVER 46-48 HOURS ON DAY 1
     Route: 042
     Dates: start: 20130813
  4. ELOXATIN [Suspect]
     Indication: ADENOCARCINOMA OF COLON
     Dosage: 85 MG/M2 OVER 2 HOURS ON DAY 1
     Route: 042
     Dates: start: 20130813
  5. LEUCOVORIN [Suspect]
     Indication: ADENOCARCINOMA OF COLON
     Dosage: 400 MG/M2 OVER 2 HOURS ON DAY 1
     Route: 042
     Dates: start: 20130813

REACTIONS (13)
  - Febrile neutropenia [Recovered/Resolved]
  - Neutrophil count decreased [Recovered/Resolved]
  - White blood cell count decreased [Recovered/Resolved]
  - Chills [Recovering/Resolving]
  - Fatigue [Recovering/Resolving]
  - Pyrexia [Recovered/Resolved]
  - Malaise [Recovering/Resolving]
  - Abdominal pain [Recovering/Resolving]
  - Stomatitis [Recovering/Resolving]
  - Nausea [Recovered/Resolved]
  - Vomiting [Recovering/Resolving]
  - Anaemia [Recovering/Resolving]
  - Wound infection [Recovering/Resolving]
